FAERS Safety Report 22228839 (Version 1)
Quarter: 2023Q2

REPORT INFORMATION
  Report Type: Spontaneous
  Country: US (occurrence: None)
  Receive Date: 20230418
  Receipt Date: 20230418
  Transmission Date: 20230721
  Serious: No
  Sender: FDA-Public Use
  Company Number: None

PATIENT
  Age: 91 Year
  Sex: Male
  Weight: 94.21 kg

DRUGS (31)
  1. ABIRATERONE [Suspect]
     Active Substance: ABIRATERONE
     Indication: Prostate cancer
     Dosage: OTHER FREQUENCY : EVERY MORNING;?
     Route: 048
     Dates: start: 202301
  2. LIRAGLUTIDE [Concomitant]
     Route: 058
  3. GABAPENTIN [Concomitant]
  4. ACETAMINOPHEN [Concomitant]
  5. AMOXICILLIN [Concomitant]
     Active Substance: AMOXICILLIN
  6. CALCIUM CITRATE + D [Concomitant]
  7. CASODEX [Concomitant]
  8. CIPRO [Concomitant]
  9. FISH OIL [Concomitant]
  10. MELATONIN [Concomitant]
     Active Substance: MELATONIN
  11. ELIQUIS [Concomitant]
  12. EUTHYROX [Concomitant]
  13. FERROUS SULFATE [Concomitant]
  14. FLONASE [Concomitant]
  15. GLIPIZIDE [Concomitant]
  16. GLUCOSAMINE-CHONDROITIN-VIT C-MI [Concomitant]
  17. COMPLETE 50+ [Concomitant]
  18. IPRATROPIUM BROMIDE [Concomitant]
  19. LASIX [Concomitant]
  20. LISINOPRIL [Concomitant]
  21. LORATADINE [Concomitant]
  22. METFORMIN [Concomitant]
  23. METOPROLOL [Concomitant]
     Active Substance: METOPROLOL
  24. MUPIROCIN [Concomitant]
  25. NITROGLYCERIN [Concomitant]
  26. OMEPRAZOLE [Concomitant]
  27. PREDNISONE [Concomitant]
  28. PROSCAR [Concomitant]
  29. SAW PALMETTO [Concomitant]
  30. SIMVASTATIN [Concomitant]
  31. TAMSULOSIN [Concomitant]

REACTIONS (1)
  - Hospice care [None]
